FAERS Safety Report 12694616 (Version 5)
Quarter: 2017Q1

REPORT INFORMATION
  Report Type: Spontaneous
  Country: US (occurrence: US)
  Receive Date: 20160829
  Receipt Date: 20170104
  Transmission Date: 20170428
  Serious: Yes (Other)
  Sender: FDA-Public Use
  Company Number: US-ALEXION PHARMACEUTICALS INC-A201606300

PATIENT
  Age: 55 Year
  Sex: Male

DRUGS (2)
  1. SOLIRIS [Suspect]
     Active Substance: ECULIZUMAB
     Dosage: 1200 MG, EVERY 12 DAYS
     Route: 042
  2. SOLIRIS [Suspect]
     Active Substance: ECULIZUMAB
     Indication: PAROXYSMAL NOCTURNAL HAEMOGLOBINURIA
     Dosage: UNK, EVERY 12 DAYS
     Route: 042

REACTIONS (10)
  - Jaundice [Unknown]
  - Platelet count abnormal [Unknown]
  - Protein total decreased [Unknown]
  - Incorrect dose administered [Not Recovered/Not Resolved]
  - Blood lactate dehydrogenase increased [Unknown]
  - Vitamin B12 increased [Unknown]
  - Fatigue [Unknown]
  - Blood bilirubin increased [Unknown]
  - Haemoglobin decreased [Unknown]
  - Haematocrit abnormal [Unknown]

NARRATIVE: CASE EVENT DATE: 20160822
